FAERS Safety Report 8342302-2 (Version None)
Quarter: 2012Q2

REPORT INFORMATION
  Report Type: 
  Country: None (occurrence: None)
  Receive Date: 20120507
  Receipt Date: 20120430
  Transmission Date: 20120825
  Serious: Yes (Hospitalization, Other)
  Sender: FDA-Public Use
  Company Number: US-AMGEN-USASP2012027674

PATIENT
  Age: 49 Year
  Sex: Male
  Weight: 117.46 kg

DRUGS (2)
  1. PROCRIT [Suspect]
     Indication: PRODUCT USED FOR UNKNOWN INDICATION
     Dosage: 10 IU, 3 TIMES/WK
  2. AMIKACIN [Concomitant]
     Dosage: 500 MG, UNK

REACTIONS (5)
  - DECUBITUS ULCER [None]
  - DRUG INTERACTION [None]
  - ANAEMIA [None]
  - BLOOD COUNT ABNORMAL [None]
  - OSTEOMYELITIS [None]
